FAERS Safety Report 11826293 (Version 1)
Quarter: 2015Q4

REPORT INFORMATION
  Report Type: Spontaneous
  Country: US (occurrence: None)
  Receive Date: 20151210
  Receipt Date: 20151210
  Transmission Date: 20160305
  Serious: Yes (Disabling)
  Sender: FDA-Public Use
  Company Number: None

PATIENT
  Age: 52 Year
  Sex: Male
  Weight: 113.4 kg

DRUGS (2)
  1. EQUATE IBUPROFEN [Suspect]
     Active Substance: IBUPROFEN
     Indication: ANTIINFLAMMATORY THERAPY
     Dosage: 3 PILLS
     Route: 048
     Dates: start: 20151205, end: 20151205
  2. EQUATE IBUPROFEN [Suspect]
     Active Substance: IBUPROFEN
     Indication: PAIN MANAGEMENT
     Dosage: 3 PILLS
     Route: 048
     Dates: start: 20151205, end: 20151205

REACTIONS (2)
  - Malaise [None]
  - Product odour abnormal [None]

NARRATIVE: CASE EVENT DATE: 20151205
